FAERS Safety Report 10577039 (Version 1)
Quarter: 2014Q4

REPORT INFORMATION
  Report Type: Spontaneous
  Country: BE (occurrence: BE)
  Receive Date: 20141111
  Receipt Date: 20141111
  Transmission Date: 20150529
  Serious: Yes (Hospitalization)
  Sender: FDA-Public Use
  Company Number: BE-PERRIGO-14BE010862

PATIENT
  Age: 49 Year
  Sex: Female

DRUGS (2)
  1. MORPHINE SULFATE 20 MG/ML 0L8 [Suspect]
     Active Substance: MORPHINE SULFATE
     Indication: INTESTINAL TRANSIT TIME
     Dosage: UNK, UNK
     Route: 065
  2. CODEINE [Suspect]
     Active Substance: CODEINE
     Indication: INTESTINAL TRANSIT TIME
     Dosage: UNK, UNK
     Route: 065

REACTIONS (6)
  - Obstruction gastric [Recovered/Resolved]
  - Bradypnoea [Recovered/Resolved]
  - Coma [Unknown]
  - Miosis [Unknown]
  - Toxicity to various agents [Recovered/Resolved]
  - Intentional product misuse [Unknown]
